FAERS Safety Report 5925837-9 (Version None)
Quarter: 2008Q4

REPORT INFORMATION
  Report Type: 
  Country: None (occurrence: None)
  Receive Date: 20081021
  Receipt Date: 20081014
  Transmission Date: 20090506
  Serious: Yes (Hospitalization)
  Sender: FDA-Public Use
  Company Number: GB-AVENTIS-200819089GDDC

PATIENT
  Age: 25 Year
  Sex: Female

DRUGS (1)
  1. FLAGYL [Suspect]
     Indication: DIVERTICULITIS
     Route: 048
     Dates: start: 20080908, end: 20080911

REACTIONS (3)
  - COORDINATION ABNORMAL [None]
  - DYSTONIA [None]
  - MUSCULAR WEAKNESS [None]
